FAERS Safety Report 16072841 (Version 2)
Quarter: 2019Q2

REPORT INFORMATION
  Report Type: Spontaneous
  Country: US (occurrence: US)
  Receive Date: 20190314
  Receipt Date: 20190530
  Transmission Date: 20190711
  Serious: Yes (Hospitalization, Disabling)
  Sender: FDA-Public Use
  Company Number: US-009507513-1902USA011336

PATIENT
  Age: 80 Year
  Sex: Female
  Weight: 58.96 kg

DRUGS (5)
  1. DEPO-MEDROL [Concomitant]
     Active Substance: METHYLPREDNISOLONE ACETATE
     Dosage: UNK
  2. FORTEO [Suspect]
     Active Substance: TERIPARATIDE
     Dosage: UNK
  3. LEVAQUIN [Suspect]
     Active Substance: LEVOFLOXACIN
     Dosage: UNK
     Route: 048
  4. ACTONEL [Suspect]
     Active Substance: RISEDRONATE SODIUM
     Dosage: UNK
  5. CELESTONE SOLUSPAN [Suspect]
     Active Substance: BETAMETHASONE ACETATE\BETAMETHASONE SODIUM PHOSPHATE
     Dosage: UNK

REACTIONS (11)
  - Joint stiffness [Unknown]
  - Gait inability [Not Recovered/Not Resolved]
  - Injection site oedema [Not Recovered/Not Resolved]
  - Muscle spasms [Unknown]
  - Product prescribing error [Unknown]
  - Oedema peripheral [Unknown]
  - Drug hypersensitivity [Unknown]
  - Tendonitis [Unknown]
  - Abdominal pain [Unknown]
  - Insomnia [Unknown]
  - Joint swelling [Unknown]

NARRATIVE: CASE EVENT DATE: 20141218
